FAERS Safety Report 6920217-1 (Version None)
Quarter: 2010Q3

REPORT INFORMATION
  Report Type: 
  Country: None (occurrence: None)
  Receive Date: 20100809
  Receipt Date: 20100518
  Transmission Date: 20110219
  Serious: Yes (Other)
  Sender: FDA-Public Use
  Company Number: 2010-US-0026

PATIENT
  Age: 65 Year
  Sex: Female

DRUGS (3)
  1. SANCUSO [Suspect]
     Indication: PROPHYLAXIS OF NAUSEA AND VOMITING
     Dosage: 2 PATCHES Q WK CYCLE TRANSDERMAL
     Route: 062
     Dates: start: 20090201
  2. DECADRON [Suspect]
     Indication: NAUSEA
     Dates: start: 20090201
  3. CHEMOTHERAPY NOS [Suspect]
     Indication: CHEMOTHERAPY

REACTIONS (6)
  - CONSTIPATION [None]
  - EYE PAIN [None]
  - HEADACHE [None]
  - NAUSEA [None]
  - PRODUCT ADHESION ISSUE [None]
  - PULMONARY OEDEMA [None]
